FAERS Safety Report 8759888 (Version 2)
Quarter: 2015Q1

REPORT INFORMATION
  Report Type: Report from Study
  Country: US (occurrence: US)
  Receive Date: 20120829
  Receipt Date: 20150317
  Transmission Date: 20150721
  Serious: Yes (Death)
  Sender: FDA-Public Use
  Company Number: US-ROCHE-1104318

PATIENT
  Age: 83 Year
  Sex: Male

DRUGS (7)
  1. TYLENOL [Concomitant]
     Active Substance: ACETAMINOPHEN
  2. ZOMETA [Concomitant]
     Active Substance: ZOLEDRONIC ACID
     Route: 042
  3. ARANESP [Concomitant]
     Active Substance: DARBEPOETIN ALFA
  4. TARCEVA [Suspect]
     Active Substance: ERLOTINIB HYDROCHLORIDE
     Indication: PRODUCT USED FOR UNKNOWN INDICATION
     Route: 065
     Dates: start: 20050721
  5. AVASTIN [Suspect]
     Active Substance: BEVACIZUMAB
     Indication: MALIGNANT RESPIRATORY TRACT NEOPLASM
     Route: 042
     Dates: start: 20050721
  6. ZOMETA [Concomitant]
     Active Substance: ZOLEDRONIC ACID
     Route: 042
  7. TETRACYCLINE [Concomitant]
     Active Substance: TETRACYCLINE
     Indication: RASH

REACTIONS (8)
  - Death [Fatal]
  - Rash [Unknown]
  - Back pain [Recovered/Resolved]
  - Confusional state [Unknown]
  - Fatigue [Unknown]
  - Off label use [Unknown]
  - Asthenia [Unknown]
  - Drug intolerance [Unknown]

NARRATIVE: CASE EVENT DATE: 20051013
